FAERS Safety Report 7510809-3 (Version None)
Quarter: 2011Q2

REPORT INFORMATION
  Report Type: 
  Country: None (occurrence: None)
  Receive Date: 20110531
  Receipt Date: 20110523
  Transmission Date: 20111010
  Serious: Yes (Other)
  Sender: FDA-Public Use
  Company Number: CH-BRISTOL-MYERS SQUIBB COMPANY-15551724

PATIENT
  Age: 43 Year
  Sex: Male

DRUGS (8)
  1. REYATAZ [Suspect]
     Indication: HIV INFECTION
     Dates: start: 20060201, end: 20110103
  2. CANDESARTAN CILEXETIL [Concomitant]
     Indication: HYPERTENSION
     Route: 048
     Dates: start: 20091106, end: 20110103
  3. BUPRENORPHINE [Concomitant]
     Indication: DRUG DEPENDENCE
     Route: 048
     Dates: start: 20050513
  4. TRUVADA [Suspect]
     Indication: HIV INFECTION
     Dosage: 1DF=245/200 UNIT NOT SPECIFIED
     Dates: start: 20060201, end: 20110103
  5. MARCUMAR [Concomitant]
     Route: 048
     Dates: start: 20090106, end: 20110103
  6. EFFEXOR [Concomitant]
  7. RITALIN [Concomitant]
     Indication: ATTENTION DEFICIT/HYPERACTIVITY DISORDER
     Route: 048
     Dates: start: 20090331, end: 20110103
  8. NORVIR [Suspect]
     Indication: HIV INFECTION
     Dates: start: 20060201, end: 20110103

REACTIONS (2)
  - GLOMERULONEPHRITIS [None]
  - RENAL ATROPHY [None]
